FAERS Safety Report 5593338-6 (Version None)
Quarter: 2008Q1

REPORT INFORMATION
  Report Type: 
  Country: None (occurrence: None)
  Receive Date: 20080116
  Receipt Date: 20080111
  Transmission Date: 20080703
  Serious: Yes (Disabling)
  Sender: FDA-Public Use
  Company Number: JP-ASTRAZENECA-2007AP08139

PATIENT
  Age: 24904 Day
  Sex: Male
  Weight: 55 kg

DRUGS (3)
  1. ANAPEINE INJECTION [Suspect]
     Indication: EPIDURAL ANAESTHESIA
     Dosage: 5 ML/H
     Route: 008
     Dates: start: 20070313, end: 20070314
  2. ANAPEINE INJECTION [Concomitant]
     Route: 008
     Dates: start: 20070313, end: 20070313
  3. FENTANYL [Concomitant]
     Indication: PAIN
     Route: 008
     Dates: start: 20070313, end: 20070314

REACTIONS (1)
  - PARAPLEGIA [None]
